FAERS Safety Report 10523744 (Version 2)
Quarter: 2014Q4

REPORT INFORMATION
  Report Type: Spontaneous
  Country: US (occurrence: US)
  Receive Date: 20141017
  Receipt Date: 20141226
  Transmission Date: 20150528
  Serious: Yes (Death, Other)
  Sender: FDA-Public Use
  Company Number: US-BRISTOL-MYERS SQUIBB COMPANY-21465851

PATIENT
  Sex: Female

DRUGS (7)
  1. SIMVASTATIN. [Concomitant]
     Active Substance: SIMVASTATIN
  2. OMEPRAZOLE. [Concomitant]
     Active Substance: OMEPRAZOLE
  3. METFORMIN [Concomitant]
     Active Substance: METFORMIN HYDROCHLORIDE
  4. POTASSIUM CHLORIDE. [Concomitant]
     Active Substance: POTASSIUM CHLORIDE
  5. ORENCIA [Suspect]
     Active Substance: ABATACEPT
     Indication: RHEUMATOID ARTHRITIS
     Dosage: 125 MG, UNK
     Route: 058
     Dates: start: 201407, end: 201408
  6. LOPRESSOR [Concomitant]
     Active Substance: METOPROLOL TARTRATE
  7. ZYPREXA [Concomitant]
     Active Substance: OLANZAPINE

REACTIONS (1)
  - Chronic obstructive pulmonary disease [Fatal]
